FAERS Safety Report 23483445 (Version 1)
Quarter: 2024Q1

REPORT INFORMATION
  Report Type: Spontaneous
  Country: US (occurrence: None)
  Receive Date: 20240204
  Receipt Date: 20240204
  Transmission Date: 20240410
  Serious: Yes (Disabling)
  Sender: FDA-Public Use
  Company Number: None

PATIENT
  Age: 32 Year
  Weight: 90.72 kg

DRUGS (1)
  1. CLARISCAN [Suspect]
     Active Substance: GADOTERATE MEGLUMINE

REACTIONS (3)
  - Contrast media reaction [None]
  - Brain injury [None]
  - Cardiac disorder [None]

NARRATIVE: CASE EVENT DATE: 20230623
